FAERS Safety Report 8313605-2 (Version None)
Quarter: 2012Q2

REPORT INFORMATION
  Report Type: 
  Country: None (occurrence: None)
  Receive Date: 20120426
  Receipt Date: 20120416
  Transmission Date: 20120825
  Serious: Yes (Hospitalization, Other)
  Sender: FDA-Public Use
  Company Number: CA-SANOFI-AVENTIS-2012SA016688

PATIENT
  Age: 72 Year
  Sex: Female

DRUGS (18)
  1. ACETAMINOPHEN [Concomitant]
  2. PRAMIPEXOLE DIHYDROCHLORIDE [Concomitant]
  3. ORENCIA [Suspect]
     Indication: RHEUMATOID ARTHRITIS
     Dosage: EVERY TWO WEEKS
     Route: 042
     Dates: start: 20110801
  4. LYRICA [Suspect]
  5. DILAUDID [Suspect]
  6. CALCIUM [Concomitant]
  7. PREDNISONE TAB [Suspect]
  8. LEVOTHYROXINE SODIUM [Concomitant]
     Route: 048
     Dates: end: 20120101
  9. CALCITONIN SALMON [Concomitant]
  10. CYMBALTA [Suspect]
  11. ALENDRONATE SODIUM [Concomitant]
  12. ATENOLOL [Concomitant]
  13. ARAVA [Suspect]
     Route: 048
  14. OXYBUTYNIN [Concomitant]
  15. ESOMEPRAZOLE MAGNESIUM [Concomitant]
  16. HYDROMORPHONE HCL [Concomitant]
  17. NAPROXEN [Concomitant]
  18. AMILORIDE HYDROCHLORIDE [Concomitant]

REACTIONS (13)
  - ABDOMINAL PAIN [None]
  - VOMITING [None]
  - ASTHENIA [None]
  - WOUND COMPLICATION [None]
  - SLEEP APNOEA SYNDROME [None]
  - HAEMOGLOBIN DECREASED [None]
  - INFLAMMATION [None]
  - WEIGHT DECREASED [None]
  - DIARRHOEA [None]
  - BURSITIS [None]
  - NAUSEA [None]
  - URINARY TRACT INFECTION [None]
  - VISUAL IMPAIRMENT [None]
